FAERS Safety Report 9649375 (Version 1)
Quarter: 2013Q4

REPORT INFORMATION
  Report Type: Spontaneous
  Country: IT (occurrence: IT)
  Receive Date: 20131028
  Receipt Date: 20131028
  Transmission Date: 20140711
  Serious: Yes (Other)
  Sender: FDA-Public Use
  Company Number: IT-TEVA-439193ISR

PATIENT
  Age: 36 Year
  Sex: Female

DRUGS (1)
  1. PAROXETINA CLORIDRATO [Suspect]
     Dosage: 300 MILLIGRAM DAILY;
     Route: 048
     Dates: start: 20130415, end: 20130415

REACTIONS (4)
  - Drug abuse [Not Recovered/Not Resolved]
  - Malaise [Not Recovered/Not Resolved]
  - Mydriasis [Not Recovered/Not Resolved]
  - Tremor [Not Recovered/Not Resolved]
